FAERS Safety Report 6537552-1 (Version None)
Quarter: 2010Q1

REPORT INFORMATION
  Report Type: 
  Country: None (occurrence: None)
  Receive Date: 20100114
  Receipt Date: 20100108
  Transmission Date: 20100710
  Serious: Yes (Other)
  Sender: FDA-Public Use
  Company Number: US-BAYER-200917481BCC

PATIENT
  Age: 73 Year
  Sex: Female
  Weight: 79 kg

DRUGS (9)
  1. ALEVE [Suspect]
     Indication: BACK PAIN
     Dosage: UNIT DOSE: 220 MG
     Route: 048
     Dates: start: 20091110, end: 20091110
  2. ALEVE [Suspect]
     Route: 048
     Dates: start: 20091111, end: 20091112
  3. ALEVE (CAPLET) [Suspect]
     Indication: PAIN
     Dosage: UNIT DOSE: 220 MG
     Route: 048
     Dates: start: 20091127, end: 20091128
  4. LISINOPRIL [Concomitant]
     Route: 065
     Dates: start: 20040406
  5. LIPITOR [Concomitant]
     Route: 065
     Dates: start: 20040406
  6. LEVOTHYROXINE SODIUM [Concomitant]
     Route: 065
     Dates: start: 19830101
  7. ASPIRIN [Concomitant]
     Dosage: UNIT DOSE: 81 MG
     Route: 065
     Dates: start: 20040406
  8. NITROGLYCERIN [Concomitant]
     Route: 065
  9. METOPROLOL [Concomitant]
     Route: 065
     Dates: start: 20040406

REACTIONS (2)
  - PHARYNGEAL OEDEMA [None]
  - SWELLING FACE [None]
